FAERS Safety Report 6659505-5 (Version None)
Quarter: 2010Q1

REPORT INFORMATION
  Report Type: 
  Country: None (occurrence: None)
  Receive Date: 20100330
  Receipt Date: 20100317
  Transmission Date: 20100710
  Serious: Yes (Hospitalization)
  Sender: FDA-Public Use
  Company Number: KR-ELI_LILLY_AND_COMPANY-KR201003004735

PATIENT
  Age: 46 Year
  Sex: Male
  Weight: 57.9 kg

DRUGS (6)
  1. ALIMTA [Suspect]
     Indication: LUNG NEOPLASM MALIGNANT
     Dosage: 500 MG/M2, UNKNOWN
     Route: 065
     Dates: start: 20100311
  2. CISPLATIN [Concomitant]
     Indication: LUNG NEOPLASM MALIGNANT
     Dosage: UNK, UNKNOWN
     Route: 065
     Dates: start: 20100311
  3. DEXAMETHASONE [Concomitant]
     Dosage: 4 MG, 2/D
     Route: 065
     Dates: start: 20100310, end: 20100312
  4. FOLIC ACID [Concomitant]
     Dosage: 1 MG, DAILY (1/D)
     Route: 065
     Dates: start: 20100304
  5. KYTRIL [Concomitant]
     Dosage: 1 MG, DAILY (1/D)
     Route: 065
     Dates: start: 20100311, end: 20100315
  6. CODEINE SULFATE [Concomitant]
     Dosage: 40 MG, 3/D
     Route: 065
     Dates: start: 20100304

REACTIONS (1)
  - PERICARDIAL EFFUSION [None]
